FAERS Safety Report 12204303 (Version 1)
Quarter: 2016Q1

REPORT INFORMATION
  Report Type: Spontaneous
  Country: US (occurrence: None)
  Receive Date: 20160322
  Receipt Date: 20160322
  Transmission Date: 20160526
  Serious: Yes (Other)
  Sender: FDA-Public Use
  Company Number: None

PATIENT
  Age: 14 Year
  Sex: Male

DRUGS (1)
  1. HISTRELIN LA HISTRELIN (GONADOTROPIN RELEASING HORMONE AGONIST (GNRH)) IMPLANT [Suspect]
     Active Substance: HISTRELIN

REACTIONS (6)
  - Device colour issue [None]
  - Device material issue [None]
  - Device breakage [None]
  - Complication of device removal [None]
  - Postoperative adhesion [None]
  - Product size issue [None]

NARRATIVE: CASE EVENT DATE: 20130528
